FAERS Safety Report 25021077 (Version 1)
Quarter: 2025Q1

REPORT INFORMATION
  Report Type: Report from Study
  Country: PA (occurrence: PA)
  Receive Date: 20250228
  Receipt Date: 20250228
  Transmission Date: 20250409
  Serious: Yes (Other)
  Sender: BIOGEN
  Company Number: PA-BIOGEN-2025BI01299129

PATIENT
  Age: 68 Year
  Sex: Female
  Weight: 48.1 kg

DRUGS (9)
  1. AVONEX [Suspect]
     Active Substance: INTERFERON BETA-1A
     Indication: Relapsing multiple sclerosis
     Route: 050
     Dates: start: 200507, end: 202501
  2. AVONEX [Suspect]
     Active Substance: INTERFERON BETA-1A
  3. AVONEX [Suspect]
     Active Substance: INTERFERON BETA-1A
  4. AVONEX [Suspect]
     Active Substance: INTERFERON BETA-1A
  5. NEURONTIN [Suspect]
     Active Substance: GABAPENTIN
     Indication: Pain
     Route: 050
     Dates: start: 2005
  6. NEURONTIN [Suspect]
     Active Substance: GABAPENTIN
     Dosage: AT NIGHT
     Route: 050
     Dates: start: 2005
  7. ATENOLOL [Concomitant]
     Active Substance: ATENOLOL
     Indication: Hypertension
     Route: 050
     Dates: start: 2010
  8. ATENOLOL [Concomitant]
     Active Substance: ATENOLOL
     Route: 050
     Dates: start: 2005
  9. ASPIRIN [Concomitant]
     Active Substance: ASPIRIN
     Indication: Cerebrovascular accident prophylaxis
     Route: 050
     Dates: start: 20241127

REACTIONS (6)
  - Hydrocephalus [Recovered/Resolved]
  - Neuropathy peripheral [Not Recovered/Not Resolved]
  - Somnolence [Unknown]
  - Vitamin B12 decreased [Not Recovered/Not Resolved]
  - Blood folate increased [Not Recovered/Not Resolved]
  - Rhinorrhoea [Recovered/Resolved]

NARRATIVE: CASE EVENT DATE: 20241127
